FAERS Safety Report 15372420 (Version 1)
Quarter: 2018Q3

REPORT INFORMATION
  Report Type: Report from Study
  Country: DE (occurrence: DE)
  Receive Date: 20180911
  Receipt Date: 20180911
  Transmission Date: 20181010
  Serious: Yes (Hospitalization)
  Sender: FDA-Public Use
  Company Number: PHHO2018DE010069

PATIENT
  Age: 61 Year
  Sex: Female
  Weight: 68 kg

DRUGS (6)
  1. LETROZOLE. [Suspect]
     Active Substance: LETROZOLE
     Indication: BREAST CANCER
     Dosage: 1.0 MG, QD
     Route: 048
     Dates: start: 20180423
  2. TAVOR [Concomitant]
     Indication: DEPRESSION
     Dosage: UNK
     Route: 065
     Dates: start: 1977
  3. ABEMACICLIB [Suspect]
     Active Substance: ABEMACICLIB
     Indication: BREAST CANCER
     Dosage: 150 MG, BID
     Route: 048
     Dates: start: 20180423
  4. OPIPRAMOL [Concomitant]
     Active Substance: OPIPRAMOL
     Indication: DEPRESSION
     Dosage: UNK
     Route: 065
     Dates: start: 1977
  5. L?THYROXINE [Concomitant]
     Active Substance: LEVOTHYROXINE
     Indication: GOITRE
     Dosage: UNK
     Route: 065
     Dates: start: 2009
  6. COMPARATOR ANASTROZOLE [Suspect]
     Active Substance: ANASTROZOLE
     Indication: BREAST CANCER
     Dosage: UNK
     Route: 048

REACTIONS (1)
  - Acute coronary syndrome [Unknown]

NARRATIVE: CASE EVENT DATE: 20180809
